FAERS Safety Report 18467298 (Version 1)
Quarter: 2020Q4

REPORT INFORMATION
  Report Type: Spontaneous
  Country: US (occurrence: US)
  Receive Date: 20201105
  Receipt Date: 20201105
  Transmission Date: 20210114
  Serious: No
  Sender: FDA-Public Use
  Company Number: US-LEO PHARMA-332812

PATIENT
  Age: 89 Year
  Sex: Female

DRUGS (1)
  1. FINACEA [Suspect]
     Active Substance: AZELAIC ACID
     Indication: ROSACEA
     Route: 061
     Dates: start: 20201023

REACTIONS (2)
  - Inappropriate schedule of product administration [Unknown]
  - Pain of skin [Not Recovered/Not Resolved]

NARRATIVE: CASE EVENT DATE: 20201023
